FAERS Safety Report 7725726-3 (Version None)
Quarter: 2011Q3

REPORT INFORMATION
  Report Type: 
  Country: None (occurrence: None)
  Receive Date: 20110902
  Receipt Date: 20110822
  Transmission Date: 20111222
  Serious: No
  Sender: FDA-Public Use
  Company Number: US-B.I. PHARMACEUTICALS,INC./RIDGEFIELD-2011-BP-20623BP

PATIENT
  Sex: Male

DRUGS (8)
  1. ALBUTEROL SULFATE AUTOHALER [Concomitant]
     Indication: ASTHMA
     Dates: start: 19990101
  2. COUMADIN [Concomitant]
     Indication: ATRIAL FIBRILLATION
     Dates: start: 20110820
  3. PREDNISONE [Concomitant]
     Indication: COUGH
     Dates: start: 20080101
  4. SYMBICORT [Concomitant]
     Indication: COUGH
     Dates: start: 20080101
  5. COREG [Concomitant]
     Indication: HYPERTENSION
     Dates: start: 20010101
  6. COZAAR [Concomitant]
     Indication: HYPERTENSION
     Dates: start: 20060101
  7. LEVAQUIN [Concomitant]
     Indication: SINUSITIS
     Dates: start: 20080101
  8. PRADAXA [Suspect]
     Indication: ATRIAL FIBRILLATION
     Dosage: 300 MG
     Route: 048
     Dates: start: 20110801, end: 20110819

REACTIONS (5)
  - DIZZINESS [None]
  - ABASIA [None]
  - SENSATION OF PRESSURE [None]
  - VISION BLURRED [None]
  - ODYNOPHAGIA [None]
